FAERS Safety Report 11853379 (Version 4)
Quarter: 2017Q3

REPORT INFORMATION
  Report Type: Spontaneous
  Country: US (occurrence: US)
  Receive Date: 20151218
  Receipt Date: 20170814
  Transmission Date: 20171127
  Serious: Yes (Other)
  Sender: FDA-Public Use
  Company Number: US-JAZZ-2014-US-011249

PATIENT
  Sex: Female

DRUGS (6)
  1. XYREM [Suspect]
     Active Substance: SODIUM OXYBATE
     Dosage: DOSAGE ADJUSTMENTS
     Route: 048
  2. XYREM [Suspect]
     Active Substance: SODIUM OXYBATE
     Indication: NARCOLEPSY
     Dosage: 1.5 G, BID
     Route: 048
     Dates: start: 201005, end: 2010
  3. XYREM [Suspect]
     Active Substance: SODIUM OXYBATE
     Dosage: 2 G, BID
     Route: 048
     Dates: start: 201307
  4. XYREM [Suspect]
     Active Substance: SODIUM OXYBATE
     Dosage: 2.5 G, SECOND DOSE
     Route: 048
     Dates: start: 201409
  5. XYREM [Suspect]
     Active Substance: SODIUM OXYBATE
     Dosage: 4 G, FIRST DOSE
     Route: 048
     Dates: start: 201409
  6. AMBIEN [Suspect]
     Active Substance: ZOLPIDEM TARTRATE
     Indication: NARCOLEPSY
     Route: 048

REACTIONS (13)
  - VIIth nerve injury [Unknown]
  - Surgery [Unknown]
  - Accident [Unknown]
  - Autoimmune disorder [Unknown]
  - Multiple allergies [Unknown]
  - Nasal injury [Unknown]
  - Injury [Unknown]
  - Dysphonia [Not Recovered/Not Resolved]
  - Bladder disorder [Unknown]
  - Fibromyalgia [Unknown]
  - Somnambulism [Unknown]
  - Intervertebral disc degeneration [Unknown]
  - Sinusitis [Not Recovered/Not Resolved]
